FAERS Safety Report 10174870 (Version 1)
Quarter: 2014Q2

REPORT INFORMATION
  Report Type: Report from Study
  Country: US (occurrence: US)
  Receive Date: 20140515
  Receipt Date: 20140515
  Transmission Date: 20141212
  Serious: Yes (Other)
  Sender: FDA-Public Use
  Company Number: US-IAC KOREA XML-USA-2014-0113772

PATIENT
  Age: 56 Year
  Sex: Male

DRUGS (3)
  1. OXY CR TAB [Suspect]
     Indication: SPINAL COLUMN STENOSIS
     Dosage: UNK
     Route: 048
     Dates: start: 2011
  2. OXY CR TAB [Suspect]
     Dosage: 80 MG, BID
     Route: 048
     Dates: start: 20140416
  3. OXY CR TAB [Suspect]
     Dosage: UNK, THREE TIMES DAILY
     Route: 048

REACTIONS (3)
  - Spinal column stenosis [Unknown]
  - Pain [Unknown]
  - Drug effect decreased [Unknown]
